FAERS Safety Report 5514963-4 (Version None)
Quarter: 2007Q4

REPORT INFORMATION
  Report Type: 
  Country: None (occurrence: None)
  Receive Date: 20071113
  Receipt Date: 20061023
  Transmission Date: 20080405
  Serious: No
  Sender: FDA-Public Use
  Company Number: A0624562A

PATIENT
  Age: 50 Year
  Sex: Male

DRUGS (2)
  1. COREG [Suspect]
     Dosage: 25MG TWICE PER DAY
     Route: 048
     Dates: start: 20050101
  2. ALTACE [Concomitant]

REACTIONS (1)
  - FATIGUE [None]
